FAERS Safety Report 9033230 (Version 1)
Quarter: 2013Q1

REPORT INFORMATION
  Report Type: Spontaneous
  Country: IT (occurrence: IT)
  Receive Date: 20130128
  Receipt Date: 20130128
  Transmission Date: 20140127
  Serious: Yes (Other)
  Sender: FDA-Public Use
  Company Number: IT-TEVA-382701ISR

PATIENT
  Age: 49 Year
  Sex: Male
  Weight: 110 kg

DRUGS (3)
  1. OXALIPLATIN [Suspect]
     Indication: COLON CANCER
     Dosage: 170 MG CYCLICAL
     Route: 042
     Dates: start: 20120905, end: 20120921
  2. FLUOROURACIL [Suspect]
     Dosage: 5600MG CYCLICAL
     Route: 042
     Dates: start: 20120905, end: 20120921
  3. ACIDO FOLICO [Concomitant]

REACTIONS (3)
  - Gamma-glutamyltransferase increased [Recovering/Resolving]
  - Hypertransaminasaemia [Recovering/Resolving]
  - Cholestasis [Recovering/Resolving]
